FAERS Safety Report 7413079-X (Version None)
Quarter: 2011Q2

REPORT INFORMATION
  Report Type: 
  Country: None (occurrence: None)
  Receive Date: 20110405
  Receipt Date: 20110317
  Transmission Date: 20111010
  Serious: Yes (Death)
  Sender: FDA-Public Use
  Company Number: 2011P1005313

PATIENT
  Age: 43 Year
  Sex: Male

DRUGS (1)
  1. DEXTROAMPHETAMINE (NO PREF. NAME) [Suspect]
     Dosage: 15-200 MG;X1;PO
     Route: 048

REACTIONS (11)
  - INTENTIONAL OVERDOSE [None]
  - POSTURING [None]
  - COMPLETED SUICIDE [None]
  - SELF-MEDICATION [None]
  - LOSS OF CONSCIOUSNESS [None]
  - HYPERHIDROSIS [None]
  - AREFLEXIA [None]
  - BRAIN DEATH [None]
  - BLOOD PRESSURE INCREASED [None]
  - CEREBRAL HAEMORRHAGE [None]
  - RESPIRATORY RATE DECREASED [None]
